FAERS Safety Report 4527947-X (Version None)
Quarter: 2004Q4

REPORT INFORMATION
  Report Type: 
  Country: None (occurrence: None)
  Receive Date: 20041123
  Receipt Date: 20031217
  Transmission Date: 20050328
  Serious: Yes (Other)
  Sender: FDA-Public Use
  Company Number: 2003117735

PATIENT
  Age: 59 Year
  Sex: Male

DRUGS (7)
  1. LIPITOR [Suspect]
     Indication: LIPIDS INCREASED
     Dosage: 40 MG (DAILY)
     Dates: start: 20020701, end: 20031025
  2. FENOFIBRATE [Suspect]
     Indication: BLOOD CHOLESTEROL INCREASED
     Dosage: 160 MG (DAILY)
     Dates: start: 20031001, end: 20031025
  3. METOPROLOL TARTRATE [Concomitant]
  4. VALSARTAN (VALSARTAN) [Concomitant]
  5. ASPIRIN [Concomitant]
  6. LANSOPRAZOLE [Concomitant]
  7. VENLAFAXINE HCL [Concomitant]

REACTIONS (8)
  - ALDOLASE INCREASED [None]
  - ARTHRALGIA [None]
  - BLOOD CHOLESTEROL INCREASED [None]
  - BLOOD CREATINE PHOSPHOKINASE INCREASED [None]
  - HIGH DENSITY LIPOPROTEIN INCREASED [None]
  - LABORATORY TEST ABNORMAL [None]
  - MYALGIA [None]
  - RHABDOMYOLYSIS [None]
